FAERS Safety Report 21505391 (Version 1)
Quarter: 2022Q4

REPORT INFORMATION
  Report Type: Report from Study
  Country: US (occurrence: US)
  Receive Date: 20221026
  Receipt Date: 20221026
  Transmission Date: 20230113
  Serious: Yes (Hospitalization, Other)
  Sender: FDA-Public Use
  Company Number: US-GILEAD-2022-0602408

PATIENT
  Age: 11 Year
  Sex: Male

DRUGS (2)
  1. AZTREONAM LYSINE [Suspect]
     Active Substance: AZTREONAM LYSINE
     Indication: Bronchiectasis
     Dosage: 75 MG, TID
     Route: 055
     Dates: start: 202007
  2. EPIDIOLEX [Concomitant]
     Active Substance: CANNABIDIOL
     Dosage: 1 ML
     Dates: start: 20211118

REACTIONS (1)
  - Pneumonia [Not Recovered/Not Resolved]
